FAERS Safety Report 4369983-2 (Version None)
Quarter: 2004Q2

REPORT INFORMATION
  Report Type: 
  Country: None (occurrence: None)
  Receive Date: 20040603
  Receipt Date: 20040430
  Transmission Date: 20050107
  Serious: Yes (Other)
  Sender: FDA-Public Use
  Company Number: GBPFL-S-20040005

PATIENT
  Age: 45 Year
  Sex: Female

DRUGS (2)
  1. NAVELBINE [Suspect]
     Indication: BREAST CANCER
     Dosage: 25MGM2 SEE DOSAGE TEXT
     Route: 042
     Dates: start: 20040121, end: 20040421
  2. CAPECITABINE [Concomitant]
     Dates: start: 20040121, end: 20040505

REACTIONS (7)
  - CHILLS [None]
  - DISCOMFORT [None]
  - FEELING ABNORMAL [None]
  - FEELING COLD [None]
  - MUSCLE SPASMS [None]
  - NASOPHARYNGITIS [None]
  - PYREXIA [None]
